FAERS Safety Report 7352222-8 (Version None)
Quarter: 2011Q1

REPORT INFORMATION
  Report Type: 
  Country: None (occurrence: None)
  Receive Date: 20110304
  Receipt Date: 20110224
  Transmission Date: 20110831
  Serious: Yes (Other)
  Sender: FDA-Public Use
  Company Number: 1000019083

PATIENT
  Age: 32 Year
  Sex: Female

DRUGS (5)
  1. ESCITALOPRAM OXALATE [Suspect]
     Indication: SCHIZOPHRENIA
     Dosage: 20 MG (20 MG,2 IN 1 D)
     Dates: start: 20080101
  2. ABILIFY [Suspect]
     Indication: SCHIZOPHRENIA
     Dosage: (15 MG)
     Dates: start: 20080101, end: 20100312
  3. LORAZEPAM [Suspect]
     Dates: end: 20100201
  4. STILOX (ZOLPIDEM) [Suspect]
     Indication: SLEEP DISORDER
     Dosage: 12.5 MG (23.5 MG,1 IN 1 D)
     Dates: start: 20080101
  5. ZYPREXA [Suspect]
     Indication: SCHIZOPHRENIA
     Dosage: 7.5 MG (7.5 MG,1 IN 1 D)

REACTIONS (5)
  - CHORIOAMNIONITIS [None]
  - OFF LABEL USE [None]
  - DRUG EXPOSURE DURING PREGNANCY [None]
  - PREGNANCY [None]
  - PREMATURE RUPTURE OF MEMBRANES [None]
